FAERS Safety Report 9727516 (Version 7)
Quarter: 2015Q1

REPORT INFORMATION
  Report Type: Report from Study
  Country: FR (occurrence: FR)
  Receive Date: 20131203
  Receipt Date: 20150330
  Transmission Date: 20150721
  Serious: Yes (Hospitalization, Other)
  Sender: FDA-Public Use
  Company Number: FR-TEVA-446367USA

PATIENT
  Age: 55 Year
  Sex: Male

DRUGS (13)
  1. DEXAMETHASONE. [Suspect]
     Active Substance: DEXAMETHASONE
     Dosage: REGIMEN 2
     Dates: start: 20120925
  2. NEULASTA [Concomitant]
     Active Substance: PEGFILGRASTIM
  3. BENDAMUSTINE [Suspect]
     Active Substance: BENDAMUSTINE
     Indication: PLASMA CELL MYELOMA
     Dosage: REGIMEN 1
     Route: 042
     Dates: start: 20120925, end: 20121022
  4. BENDAMUSTINE [Suspect]
     Active Substance: BENDAMUSTINE
     Dosage: REGIMEN 2
     Route: 042
     Dates: start: 20121023
  5. VELCADE [Suspect]
     Active Substance: BORTEZOMIB
     Dosage: REGIMEN 2
     Dates: start: 20120925
  6. VELCADE [Suspect]
     Active Substance: BORTEZOMIB
     Dosage: REGIMEN 3
     Dates: start: 20121023
  7. VELCADE [Suspect]
     Active Substance: BORTEZOMIB
     Indication: PLASMA CELL MYELOMA
     Dosage: REGIMEN 1
     Dates: start: 20090818
  8. NEULASTA [Concomitant]
     Active Substance: PEGFILGRASTIM
     Dates: start: 20091123
  9. ACETYLSALICYLATE LYSINE [Concomitant]
     Active Substance: ASPIRIN DL-LYSINE
     Dates: start: 201211
  10. DEXAMETHASONE. [Suspect]
     Active Substance: DEXAMETHASONE
     Indication: PLASMA CELL MYELOMA
     Dosage: REGIMEN 1
     Dates: start: 20090818, end: 201302
  11. DEXAMETHASONE. [Suspect]
     Active Substance: DEXAMETHASONE
     Dosage: REGIMEN 3
     Dates: start: 20121023
  12. DEXAMETHASONE. [Suspect]
     Active Substance: DEXAMETHASONE
     Dosage: REGIMEN 4
     Dates: start: 20121119
  13. DEXAMETHASONE. [Suspect]
     Active Substance: DEXAMETHASONE
     Dates: end: 201302

REACTIONS (3)
  - Vision blurred [Recovered/Resolved]
  - Plasma cell myeloma [Unknown]
  - VIIth nerve paralysis [Recovered/Resolved with Sequelae]

NARRATIVE: CASE EVENT DATE: 20121113
